FAERS Safety Report 16575256 (Version 4)
Quarter: 2020Q1

REPORT INFORMATION
  Report Type: Report from Study
  Country: US (occurrence: US)
  Receive Date: 20190715
  Receipt Date: 20200302
  Transmission Date: 20200409
  Serious: No
  Sender: FDA-Public Use
  Company Number: PHEH2019US029025

PATIENT
  Age: 57 Year
  Sex: Male

DRUGS (1)
  1. ENTRESTO [Suspect]
     Active Substance: SACUBITRIL\VALSARTAN
     Indication: CARDIAC FAILURE CHRONIC
     Dosage: 1 DF (97MG), BID
     Route: 048
     Dates: start: 201902

REACTIONS (5)
  - Somnolence [Unknown]
  - Malaise [Unknown]
  - Limb injury [Unknown]
  - Asthenia [Unknown]
  - Fatigue [Unknown]

NARRATIVE: CASE EVENT DATE: 20200212
